FAERS Safety Report 25036585 (Version 1)
Quarter: 2025Q1

REPORT INFORMATION
  Report Type: Spontaneous
  Country: US (occurrence: US)
  Receive Date: 20250304
  Receipt Date: 20250304
  Transmission Date: 20250409
  Serious: Yes (Hospitalization, Other)
  Sender: CHEPLAPHARM
  Company Number: US-ROCHE-2222608

PATIENT
  Age: 60 Year
  Sex: Female
  Weight: 61.9 kg

DRUGS (30)
  1. CAPECITABINE [Suspect]
     Active Substance: CAPECITABINE
     Indication: Colorectal cancer
     Dosage: DATE OF LAST DOSE ADMINISTERED 28/NOV/2018 ?DOSE: 850 OR 1000 MG/M^2? FREQUENCY TEXT:ON DAYS 1-14...
     Route: 048
     Dates: start: 20180611, end: 20181128
  2. BEVACIZUMAB [Suspect]
     Active Substance: BEVACIZUMAB
     Indication: Colorectal cancer
     Dosage: DATE OF LAST DOSE ADMINISTERED 15/NOV/2018? FREQUENCY TEXT:OVER 30- 90 MINUTES ON DAY 1
     Route: 042
     Dates: start: 20180611, end: 20181115
  3. ATEZOLIZUMAB [Suspect]
     Active Substance: ATEZOLIZUMAB
     Indication: Colorectal cancer
     Dosage: DATE OF LAST DOSE ADMINISTERED 15/NOV/2018? FREQUENCY TEXT:OVER 30-60 MINUTES ON DAY 1
     Route: 042
     Dates: start: 20180611, end: 20181115
  4. FLUOROURACIL [Concomitant]
     Active Substance: FLUOROURACIL
     Indication: Colorectal cancer
     Dates: start: 201711, end: 201712
  5. LEUCOVORIN [Concomitant]
     Active Substance: LEUCOVORIN\LEUCOVORIN CALCIUM
     Indication: Colorectal cancer
  6. OXALIPLATIN [Concomitant]
     Active Substance: OXALIPLATIN
     Indication: Colorectal cancer
  7. LEUCOVORIN [Concomitant]
     Active Substance: LEUCOVORIN\LEUCOVORIN CALCIUM
     Indication: Colorectal cancer
     Dates: start: 201711, end: 201712
  8. PANITUMUMAB [Concomitant]
     Active Substance: PANITUMUMAB
  9. TYLENOL [Concomitant]
     Active Substance: ACETAMINOPHEN
     Route: 048
  10. CABOZANTINIB [Concomitant]
     Active Substance: CABOZANTINIB
     Dates: start: 201801, end: 201802
  11. ALBUTEROL [Concomitant]
     Active Substance: ALBUTEROL
  12. ZITHROMAX [Concomitant]
     Active Substance: AZITHROMYCIN DIHYDRATE
     Route: 042
     Dates: start: 20181126, end: 20181126
  13. DULCOLAX [Concomitant]
     Route: 048
  14. ARNUITY ELLIPTA [Concomitant]
     Active Substance: FLUTICASONE FUROATE
  15. ATIVAN [Concomitant]
     Active Substance: LORAZEPAM
     Route: 048
  16. METHYLPREDNISOLONE SODIUM SUCCINATE [Concomitant]
     Active Substance: METHYLPREDNISOLONE SODIUM SUCCINATE
     Route: 042
  17. LOPRESSOR [Concomitant]
     Active Substance: METOPROLOL TARTRATE
     Route: 048
  18. ZOFRAN [Concomitant]
     Active Substance: ONDANSETRON HYDROCHLORIDE
     Route: 048
  19. ZOFRAN [Concomitant]
     Active Substance: ONDANSETRON HYDROCHLORIDE
     Route: 042
  20. ROXICODONE [Concomitant]
     Active Substance: OXYCODONE HYDROCHLORIDE
     Route: 048
     Dates: start: 20181126
  21. ZOSYN [Concomitant]
     Active Substance: PIPERACILLIN SODIUM\TAZOBACTAM SODIUM
     Route: 042
     Dates: start: 20181126
  22. XARELTO [Concomitant]
     Active Substance: RIVAROXABAN
     Route: 048
     Dates: start: 20181126
  23. VANCOCIN [Concomitant]
     Active Substance: VANCOMYCIN HYDROCHLORIDE
     Route: 042
     Dates: start: 20181126
  24. FLOVENT [Concomitant]
     Active Substance: FLUTICASONE PROPIONATE
  25. LEVAQUIN [Concomitant]
     Active Substance: LEVOFLOXACIN
  26. ZYPREXA [Concomitant]
     Active Substance: OLANZAPINE
  27. TESSALON [Concomitant]
     Active Substance: BENZONATATE
     Route: 048
  28. COMPAZINE [Concomitant]
     Active Substance: PROCHLORPERAZINE MALEATE
     Route: 048
  29. Ns Drops [Concomitant]
  30. PREDNISONE [Concomitant]
     Active Substance: PREDNISONE
     Dosage: 30 MG PREDNISONE DIVIDED INTO 3 TIMES DAY ?DAILY DOSE: 30 MILLIGRAM

REACTIONS (19)
  - Hypertension [Unknown]
  - Immune-mediated lung disease [Unknown]
  - Respiratory failure [Recovered/Resolved]
  - Embolism [Recovering/Resolving]
  - Platelet count decreased [Unknown]
  - Renal cancer metastatic [Unknown]
  - Pneumonia bacterial [Unknown]
  - Pneumonia bacterial [Unknown]
  - Lymphangiosis carcinomatosa [Unknown]
  - Thrombocytopenia [Unknown]
  - Fatigue [Unknown]
  - Peripheral swelling [Unknown]
  - Decreased appetite [Unknown]
  - Constipation [Unknown]
  - Diarrhoea [Unknown]
  - Asthenia [Unknown]
  - Urinary tract infection [Unknown]
  - Hyponatraemia [Unknown]
  - Deep vein thrombosis [Unknown]

NARRATIVE: CASE EVENT DATE: 20181116
